FAERS Safety Report 12561140 (Version 1)
Quarter: 2016Q3

REPORT INFORMATION
  Report Type: Spontaneous
  Country: IT (occurrence: IT)
  Receive Date: 20160715
  Receipt Date: 20160715
  Transmission Date: 20161109
  Serious: Yes (Other)
  Sender: FDA-Public Use
  Company Number: IT-MYLANLABS-2016M1029308

PATIENT

DRUGS (9)
  1. METHOTREXATE. [Suspect]
     Active Substance: METHOTREXATE
     Indication: GLIOBLASTOMA MULTIFORME
     Dosage: 250 MG/KG
     Route: 065
  2. CARBOPLATIN. [Suspect]
     Active Substance: CARBOPLATIN
     Dosage: 50 MG/KG
     Route: 065
  3. MELPHALAN [Suspect]
     Active Substance: MELPHALAN
     Indication: GLIOBLASTOMA MULTIFORME
     Dosage: 4 MG/KG/DAY
     Route: 065
  4. ETOPOSIDE. [Suspect]
     Active Substance: ETOPOSIDE
     Indication: GLIOBLASTOMA MULTIFORME
     Dosage: 80 MG/KG
     Route: 065
  5. CARBOPLATIN. [Suspect]
     Active Substance: CARBOPLATIN
     Indication: GLIOBLASTOMA MULTIFORME
     Dosage: 25 MG/KG
     Route: 065
  6. THIOTEPA. [Suspect]
     Active Substance: THIOTEPA
     Indication: GLIOBLASTOMA MULTIFORME
     Dosage: 10 MG/KG/DAY
     Route: 065
  7. VINCRISTINE [Suspect]
     Active Substance: VINCRISTINE
     Indication: GLIOBLASTOMA MULTIFORME
     Dosage: 0.04 MG/KG
     Route: 065
  8. CYCLOPHOSPHAMIDE. [Suspect]
     Active Substance: CYCLOPHOSPHAMIDE
     Indication: GLIOBLASTOMA MULTIFORME
     Dosage: 135 MG/KG
     Route: 065
  9. ETOPOSIDE. [Suspect]
     Active Substance: ETOPOSIDE
     Dosage: 50 MG/KG
     Route: 065

REACTIONS (4)
  - Thrombocytopenia [Unknown]
  - Transaminases increased [Unknown]
  - Anaemia [Unknown]
  - Juvenile melanoma benign [Not Recovered/Not Resolved]
